FAERS Safety Report 15495593 (Version 4)
Quarter: 2019Q2

REPORT INFORMATION
  Report Type: Spontaneous
  Country: PT (occurrence: PT)
  Receive Date: 20181014
  Receipt Date: 20190522
  Transmission Date: 20190711
  Serious: Yes (Hospitalization, Other)
  Sender: FDA-Public Use
  Company Number: PT-BAXTER-2018BAX025134

PATIENT
  Age: 27 Year
  Sex: Female

DRUGS (32)
  1. ENDOXAN [Suspect]
     Active Substance: CYCLOPHOSPHAMIDE
     Indication: THROMBOTIC MICROANGIOPATHY
     Dosage: 750 MG, QMO
     Route: 042
  2. ENDOXAN [Suspect]
     Active Substance: CYCLOPHOSPHAMIDE
     Indication: LUPUS CYSTITIS
     Dosage: 25 MILLIGRAM DAILY
     Route: 042
     Dates: start: 2012
  3. RITUXIMAB. [Suspect]
     Active Substance: RITUXIMAB
     Indication: LUPUS CYSTITIS
     Dosage: 52.5 MG/M2 DAILY; 375 MG/M2, 1/WEEK
     Route: 065
     Dates: start: 2012
  4. LISINOPRIL. [Concomitant]
     Active Substance: LISINOPRIL
     Indication: LUPUS CYSTITIS
     Dosage: 2.5 MG, QD
     Route: 065
     Dates: start: 2012
  5. MYCOPHENOLATE MOFETIL. [Suspect]
     Active Substance: MYCOPHENOLATE MOFETIL
     Indication: LUPUS NEPHRITIS
     Dosage: FORM STRENGTH: UNKNOWN
     Route: 065
  6. CALCIUM AND VIT D [Concomitant]
     Active Substance: CALCIUM\VITAMIN D
     Indication: SUPPLEMENTATION THERAPY
     Route: 065
     Dates: start: 2012
  7. METHYLPREDNISOLONE. [Suspect]
     Active Substance: METHYLPREDNISOLONE
     Indication: LUPUS NEPHRITIS
     Route: 042
     Dates: start: 2012
  8. COTRIMOXAZOLE [Concomitant]
     Active Substance: SULFAMETHOXAZOLE\TRIMETHOPRIM
     Indication: PROPHYLAXIS
     Route: 065
  9. FUROSEMIDE. [Concomitant]
     Active Substance: FUROSEMIDE
     Indication: LUPUS CYSTITIS
     Route: 065
     Dates: start: 2012
  10. CEFTRIAXONE. [Concomitant]
     Active Substance: CEFTRIAXONE
     Indication: ESCHERICHIA INFECTION
     Route: 065
  11. RITUXIMAB. [Suspect]
     Active Substance: RITUXIMAB
     Indication: LUPUS NEPHRITIS
     Route: 065
  12. PREDNISOLONE. [Suspect]
     Active Substance: PREDNISOLONE
     Indication: LUPUS NEPHRITIS
     Dosage: FORM STRENGTH: UNKNOWN
     Route: 065
     Dates: start: 2012
  13. MYCOPHENOLATE MOFETIL. [Suspect]
     Active Substance: MYCOPHENOLATE MOFETIL
     Indication: LUPUS CYSTITIS
     Route: 065
     Dates: start: 2012
  14. TAMSULOSINE [Concomitant]
     Active Substance: TAMSULOSIN HYDROCHLORIDE
     Indication: LUPUS CYSTITIS
     Dosage: 0.4 MG
     Route: 065
     Dates: start: 2012
  15. OMEPRAZOL [Concomitant]
     Active Substance: OMEPRAZOLE
     Indication: LUPUS CYSTITIS
     Dosage: 20 MILLIGRAM DAILY; 20 MG, DAILY
     Route: 065
     Dates: start: 2012
  16. PREDNISOLONE. [Suspect]
     Active Substance: PREDNISOLONE
     Dosage: FORM STRENGTH: UNKNOWN
     Route: 065
     Dates: start: 2007
  17. HYDROXYCHLOROQUINE [Concomitant]
     Active Substance: HYDROXYCHLOROQUINE
     Indication: PRODUCT USED FOR UNKNOWN INDICATION
     Dosage: 400 MG, QD
     Route: 065
  18. OMEPRAZOL [Concomitant]
     Active Substance: OMEPRAZOLE
     Indication: LUPUS NEPHRITIS
  19. PREDNISONE. [Suspect]
     Active Substance: PREDNISONE
     Indication: THROMBOTIC MICROANGIOPATHY
     Dosage: 80 MG, QD
     Route: 065
  20. COTRIMOXAZOLE [Suspect]
     Active Substance: SULFAMETHOXAZOLE\TRIMETHOPRIM
     Indication: PROPHYLAXIS
     Dosage: FORM STRENGTH UNKNOWN
     Route: 065
     Dates: start: 2012
  21. PREDNISOLONE. [Suspect]
     Active Substance: PREDNISOLONE
     Dosage: 10 MG, QD
     Route: 065
     Dates: start: 2017
  22. METHYLPREDNISOLONE. [Suspect]
     Active Substance: METHYLPREDNISOLONE
     Indication: LUPUS CYSTITIS
     Route: 065
  23. METHYLPREDNISOLONE. [Suspect]
     Active Substance: METHYLPREDNISOLONE
     Indication: LUPUS NEPHRITIS
     Route: 065
  24. NYSTATIN. [Concomitant]
     Active Substance: NYSTATIN
     Indication: ORAL CANDIDIASIS
     Route: 065
     Dates: start: 2012
  25. FUROSEMIDE. [Concomitant]
     Active Substance: FUROSEMIDE
     Indication: NEPHROPATHY
     Route: 065
  26. ENDOXAN [Suspect]
     Active Substance: CYCLOPHOSPHAMIDE
     Indication: LUPUS NEPHRITIS
     Route: 042
  27. RITUXIMAB. [Suspect]
     Active Substance: RITUXIMAB
     Indication: THROMBOTIC MICROANGIOPATHY
     Dosage: 375 MG/M2, QW
     Route: 065
  28. TAMSULOSINE [Concomitant]
     Active Substance: TAMSULOSIN HYDROCHLORIDE
     Indication: NEPHROPATHY
     Dosage: 0.4 MG, QD
     Route: 065
  29. OMEPRAZOL [Concomitant]
     Active Substance: OMEPRAZOLE
     Indication: NEPHROPATHY
     Dosage: 20 MG, QD
     Route: 065
  30. LISINOPRIL. [Concomitant]
     Active Substance: LISINOPRIL
     Indication: NEPHROPATHY
     Route: 065
  31. PREDNISOLONE. [Suspect]
     Active Substance: PREDNISOLONE
     Indication: LUPUS CYSTITIS
     Dosage: FORM STRENGTH: UNK
     Route: 065
  32. FUROSEMIDE. [Concomitant]
     Active Substance: FUROSEMIDE
     Route: 065

REACTIONS (13)
  - Leukopenia [Unknown]
  - Generalised oedema [Unknown]
  - Oral candidiasis [Unknown]
  - Bone marrow toxicity [Recovered/Resolved]
  - Off label use [Unknown]
  - Chorioretinitis [Recovering/Resolving]
  - Febrile neutropenia [Unknown]
  - Product use in unapproved indication [Unknown]
  - Candiduria [Unknown]
  - Thrombocytopenia [Unknown]
  - Microangiopathic haemolytic anaemia [Unknown]
  - Normochromic anaemia [Unknown]
  - Pancytopenia [Recovering/Resolving]
